FAERS Safety Report 8838745 (Version 1)
Quarter: 2012Q4

REPORT INFORMATION
  Report Type: 
  Country: US (occurrence: US)
  Receive Date: 20121012
  Receipt Date: 20121012
  Transmission Date: 20130627
  Serious: No
  Sender: FDA-Public Use
  Company Number: US-009507513-1210USA005872

PATIENT
  Sex: Female

DRUGS (1)
  1. GYNE LOTRIMIN 7 DAY CREAM [Suspect]
     Indication: PRODUCT USED FOR UNKNOWN INDICATION
     Dosage: UNK, qd
     Route: 067
     Dates: start: 20120509, end: 20120515

REACTIONS (1)
  - Drug effect decreased [Unknown]
